FAERS Safety Report 4798307-1 (Version None)
Quarter: 2005Q4

REPORT INFORMATION
  Report Type: 
  Country: None (occurrence: None)
  Receive Date: 20051011
  Receipt Date: 20050930
  Transmission Date: 20060501
  Serious: Yes (Death, Hospitalization, Other)
  Sender: FDA-Public Use
  Company Number: 2005-10-0013

PATIENT
  Age: 60 Year
  Sex: Male

DRUGS (8)
  1. INTRON A [Suspect]
     Indication: HEPATITIS C
     Dosage: 6 MIU QD-TIW* INTRAMUSCULAR
     Route: 030
     Dates: start: 20030408, end: 20030421
  2. INTRON A [Suspect]
     Indication: HEPATITIS C
     Dosage: 6 MIU QD-TIW* INTRAMUSCULAR
     Route: 030
     Dates: start: 20030423, end: 20031003
  3. REBETOL [Suspect]
     Indication: HEPATITIS C
     Dosage: 600-400 MG* ORAL
     Route: 048
     Dates: start: 20030408, end: 20030630
  4. REBETOL [Suspect]
     Indication: HEPATITIS C
     Dosage: 600-400 MG* ORAL
     Route: 048
     Dates: start: 20030701, end: 20030714
  5. CINAL TABLETS [Concomitant]
  6. JUVELA NICOTINATE CAPSULES [Concomitant]
  7. GASTER TABLETS [Concomitant]
  8. REBAMIPIDE TABLETS [Concomitant]

REACTIONS (6)
  - ANAEMIA [None]
  - ARTHRALGIA [None]
  - JOINT SWELLING [None]
  - POLYMYOSITIS [None]
  - PYREXIA [None]
  - SYSTEMIC INFLAMMATORY RESPONSE SYNDROME [None]
